FAERS Safety Report 6693867-8 (Version None)
Quarter: 2010Q2

REPORT INFORMATION
  Report Type: 
  Country: None (occurrence: None)
  Receive Date: 20100423
  Receipt Date: 20100414
  Transmission Date: 20101027
  Serious: Yes (Other)
  Sender: FDA-Public Use
  Company Number: PHHY2010JP20956

PATIENT
  Sex: Male
  Weight: 56 kg

DRUGS (4)
  1. ZOMETA [Suspect]
     Indication: METASTASES TO BONE
     Dosage: UNK
     Route: 042
     Dates: start: 20071030
  2. ESTRACYT [Concomitant]
     Dosage: 4 DF, UNK
     Route: 048
     Dates: start: 20091225
  3. ZOLADEX [Concomitant]
     Dosage: 10.8 MG, UNK
     Route: 058
  4. DOCETAXEL [Concomitant]
     Dosage: 40 MG
     Route: 042
     Dates: start: 20091006

REACTIONS (4)
  - BONE DISORDER [None]
  - OEDEMA PERIPHERAL [None]
  - OSTEONECROSIS [None]
  - PRIMARY SEQUESTRUM [None]
